FAERS Safety Report 7548976-8 (Version None)
Quarter: 2011Q2

REPORT INFORMATION
  Report Type: 
  Country: None (occurrence: None)
  Receive Date: 20110615
  Receipt Date: 20110603
  Transmission Date: 20111010
  Serious: Yes (Hospitalization)
  Sender: FDA-Public Use
  Company Number: US-ROCHE-746332

PATIENT
  Age: 66 Year
  Sex: Female
  Weight: 91 kg

DRUGS (17)
  1. OMEPRAZOLE [Concomitant]
     Dates: start: 20080526
  2. DOCUSATE [Concomitant]
     Dates: start: 20080527
  3. PREDNISONE [Suspect]
     Route: 048
     Dates: start: 20090520
  4. METOPROLOL [Concomitant]
     Dates: start: 20080703
  5. TRAMADOL HCL [Concomitant]
     Dates: start: 20090204
  6. CALCIUM CARBONATE [Concomitant]
     Dates: start: 20080606
  7. SPIRONOLACTONE [Concomitant]
     Dates: start: 20100216
  8. MYCOPHENOLATE MEFETIL [Suspect]
     Route: 048
     Dates: start: 20080905
  9. NEORAL [Suspect]
     Dosage: DOSE INCREASED
     Route: 048
     Dates: start: 20101124
  10. AMLODIPINE [Concomitant]
     Dates: start: 20081022
  11. NEORAL [Suspect]
     Route: 048
     Dates: start: 20090527
  12. FUROSEMIDE [Concomitant]
     Dates: start: 20080602
  13. HYDROXYCHLOROQUINE SULFATE [Concomitant]
     Dates: start: 20080620
  14. DIPHENHYDRAMINE HCL [Concomitant]
     Dates: start: 20000101
  15. NEORAL [Suspect]
     Route: 048
     Dates: start: 20100625, end: 20101123
  16. ENALAPRIL MALEATE [Concomitant]
     Dates: start: 20100518
  17. HYDROCHLOROTHIAZIDE [Concomitant]
     Dates: start: 20100216

REACTIONS (2)
  - TRANSPLANT REJECTION [None]
  - HYPERKALAEMIA [None]
